FAERS Safety Report 25605306 (Version 1)
Quarter: 2025Q3

REPORT INFORMATION
  Report Type: Spontaneous
  Country: JP (occurrence: JP)
  Receive Date: 20250725
  Receipt Date: 20250725
  Transmission Date: 20251021
  Serious: Yes (Hospitalization, Other)
  Sender: MERCK SHARP & DOHME LLC
  Company Number: JP-MSD-2403JPN002752JAA

PATIENT
  Age: 67 Year
  Sex: Female

DRUGS (2)
  1. KEYTRUDA [Suspect]
     Active Substance: PEMBROLIZUMAB
     Indication: Endometrial adenocarcinoma
     Route: 041
     Dates: start: 202204
  2. LENVATINIB MESYLATE [Suspect]
     Active Substance: LENVATINIB MESYLATE
     Indication: Endometrial adenocarcinoma
     Route: 048
     Dates: start: 202204

REACTIONS (13)
  - Sepsis [Unknown]
  - Hypokalaemia [Recovering/Resolving]
  - Cardiac failure [Recovering/Resolving]
  - Malignant neoplasm progression [Unknown]
  - Ileus [Unknown]
  - Immune-mediated adrenal insufficiency [Recovering/Resolving]
  - Hypothyroidism [Not Recovered/Not Resolved]
  - Hyperthyroidism [Unknown]
  - Urinary tract infection [Unknown]
  - Silent thyroiditis [Unknown]
  - Thyroiditis [Unknown]
  - Therapy partial responder [Not Recovered/Not Resolved]
  - Hyponatraemia [Recovering/Resolving]

NARRATIVE: CASE EVENT DATE: 20220101
